FAERS Safety Report 4695558-1 (Version None)
Quarter: 2005Q2

REPORT INFORMATION
  Report Type: 
  Country: None (occurrence: None)
  Receive Date: 20050523
  Receipt Date: 20050113
  Transmission Date: 20051028
  Serious: Yes (Hospitalization)
  Sender: FDA-Public Use
  Company Number: 2005PK00093

PATIENT
  Age: 80 Year
  Sex: Female

DRUGS (11)
  1. SEROQUEL [Suspect]
     Route: 048
     Dates: start: 20040915, end: 20040916
  2. ASASANTIN [Concomitant]
  3. ZESTRIL [Concomitant]
  4. TENORMIN [Concomitant]
  5. ASPIRIN [Concomitant]
  6. ELTROXIN [Concomitant]
  7. NEXIUM [Concomitant]
  8. CITALOPRAM [Concomitant]
     Dates: start: 20040501
  9. LORAZEPAM [Concomitant]
     Route: 048
     Dates: start: 20040913, end: 20040914
  10. LORAZEPAM [Concomitant]
     Route: 048
     Dates: start: 20040915, end: 20040916
  11. LORAZEPAM [Concomitant]
     Route: 048
     Dates: start: 20040917, end: 20040918

REACTIONS (4)
  - COORDINATION ABNORMAL [None]
  - PSYCHIATRIC SYMPTOM [None]
  - SEDATION [None]
  - VERTIGO [None]
